FAERS Safety Report 9931109 (Version 5)
Quarter: 2019Q2

REPORT INFORMATION
  Report Type: Spontaneous
  Country: US (occurrence: US)
  Receive Date: 20140227
  Receipt Date: 20190503
  Transmission Date: 20190711
  Serious: Yes (Other)
  Sender: FDA-Public Use
  Company Number: US-AMGEN-USASP2014013910

PATIENT
  Age: 79 Year
  Sex: Male
  Weight: 65.5 kg

DRUGS (2)
  1. EPOGEN [Suspect]
     Active Substance: ERYTHROPOIETIN
     Indication: CHRONIC KIDNEY DISEASE
     Dosage: 10000 UNIT, 3 TIMES/WK
     Route: 058
     Dates: start: 2009
  2. EPOGEN [Suspect]
     Active Substance: ERYTHROPOIETIN
     Dosage: UNK (6000, QTX)
     Route: 058
     Dates: end: 20140219

REACTIONS (5)
  - Haemoglobin decreased [Not Recovered/Not Resolved]
  - Anti-erythropoietin antibody positive [Not Recovered/Not Resolved]
  - Aplasia pure red cell [Unknown]
  - Haematuria [Unknown]
  - Therapeutic response decreased [Unknown]

NARRATIVE: CASE EVENT DATE: 201210
